FAERS Safety Report 25332742 (Version 1)
Quarter: 2025Q2

REPORT INFORMATION
  Report Type: Spontaneous
  Country: US (occurrence: US)
  Receive Date: 20250519
  Receipt Date: 20250519
  Transmission Date: 20250717
  Serious: Yes (Other)
  Sender: Unknown Manufacturer
  Company Number: US-MTPC-MTPA2025-0009051

PATIENT

DRUGS (1)
  1. RADICAVA [Suspect]
     Active Substance: EDARAVONE
     Indication: Amyotrophic lateral sclerosis
     Route: 042

REACTIONS (7)
  - Terminal state [Unknown]
  - Vein rupture [Unknown]
  - Speech disorder [Unknown]
  - Nausea [Unknown]
  - Fatigue [Unknown]
  - Disease progression [Unknown]
  - Drug ineffective [Unknown]
